FAERS Safety Report 18443609 (Version 1)
Quarter: 2020Q4

REPORT INFORMATION
  Report Type: Spontaneous
  Country: US (occurrence: US)
  Receive Date: 20201029
  Receipt Date: 20201029
  Transmission Date: 20210114
  Serious: No
  Sender: FDA-Public Use
  Company Number: US-INTERSECT ENT, INC.-2093394

PATIENT
  Age: 34 Year
  Sex: Male

DRUGS (1)
  1. SINUVA [Suspect]
     Active Substance: MOMETASONE FUROATE
     Indication: NASAL POLYPS
     Route: 006
     Dates: start: 20200727

REACTIONS (2)
  - Device use issue [Recovered/Resolved]
  - Rhinalgia [Recovered/Resolved]

NARRATIVE: CASE EVENT DATE: 20200729
